FAERS Safety Report 13923351 (Version 1)
Quarter: 2017Q3

REPORT INFORMATION
  Report Type: Spontaneous
  Country: CA (occurrence: CA)
  Receive Date: 20170831
  Receipt Date: 20170831
  Transmission Date: 20171127
  Serious: Yes (Other)
  Sender: FDA-Public Use
  Company Number: CA-ORION CORPORATION ORION PHARMA-TREX2017-2664

PATIENT
  Sex: Female

DRUGS (7)
  1. SORIATANE [Suspect]
     Active Substance: ACITRETIN
     Route: 065
  2. ENBREL [Suspect]
     Active Substance: ETANERCEPT
     Route: 065
  3. METHOTREXATE (TRADE NAME UNKNOWN) [Suspect]
     Active Substance: METHOTREXATE
     Route: 065
  4. REMICADE [Suspect]
     Active Substance: INFLIXIMAB
     Route: 042
  5. RAPTIVA [Suspect]
     Active Substance: EFALIZUMAB
     Route: 058
  6. STELARA [Suspect]
     Active Substance: USTEKINUMAB
     Route: 058
  7. NEORAL [Suspect]
     Active Substance: CYCLOSPORINE
     Indication: PSORIASIS
     Route: 048

REACTIONS (8)
  - Myalgia [Unknown]
  - Erythema [Unknown]
  - Nausea [Unknown]
  - Decreased appetite [Unknown]
  - Hypersensitivity [Unknown]
  - Fatigue [Unknown]
  - Psoriasis [Unknown]
  - Vomiting [Unknown]
